FAERS Safety Report 13737680 (Version 1)
Quarter: 2017Q3

REPORT INFORMATION
  Report Type: Spontaneous
  Country: US (occurrence: US)
  Receive Date: 20170710
  Receipt Date: 20170710
  Transmission Date: 20171127
  Serious: Yes (Other)
  Sender: FDA-Public Use
  Company Number: US-SAOL THERAPEUTICS-2016SAO00121

PATIENT
  Age: 57 Year
  Sex: Female

DRUGS (20)
  1. DILAUDID [Suspect]
     Active Substance: HYDROMORPHONE HYDROCHLORIDE
  2. PROCTOZONE [Suspect]
     Active Substance: HYDROCORTISONE
  3. PHENERGAN [Suspect]
     Active Substance: PROMETHAZINE HYDROCHLORIDE
  4. COMPOUNDED BACLOFEN [Suspect]
     Active Substance: BACLOFEN
     Indication: ARACHNOIDITIS
  5. COMPOUNDED BACLOFEN [Suspect]
     Active Substance: BACLOFEN
     Indication: ARACHNOIDITIS
     Dosage: 240 ?G, \DAY
     Route: 037
  6. BACLOFEN. [Suspect]
     Active Substance: BACLOFEN
  7. TREXIMET [Suspect]
     Active Substance: NAPROXEN SODIUM\SUMATRIPTAN SUCCINATE
  8. COMPOUNDED BACLOFEN [Suspect]
     Active Substance: BACLOFEN
     Indication: SPINAL PAIN
  9. DILAUDID [Suspect]
     Active Substance: HYDROMORPHONE HYDROCHLORIDE
     Dosage: 8 MG, \DAY
     Route: 037
  10. VALIUM [Suspect]
     Active Substance: DIAZEPAM
  11. PRIALT [Suspect]
     Active Substance: ZICONOTIDE ACETATE
  12. COMPOUNDED BACLOFEN [Suspect]
     Active Substance: BACLOFEN
     Indication: SPINAL PAIN
  13. CLONIDINE. [Suspect]
     Active Substance: CLONIDINE
     Dosage: 880 ?G, \DAY
     Route: 037
  14. BUPIVACAINE. [Suspect]
     Active Substance: BUPIVACAINE
     Dosage: 16 MG, \DAY
     Route: 037
  15. MOVANTIK [Suspect]
     Active Substance: NALOXEGOL OXALATE
  16. CELEBREX [Suspect]
     Active Substance: CELECOXIB
  17. BUPIVACAINE. [Suspect]
     Active Substance: BUPIVACAINE
  18. MS CONTIN [Suspect]
     Active Substance: MORPHINE SULFATE
  19. LAMICTAL [Suspect]
     Active Substance: LAMOTRIGINE
  20. ROXICODONE [Suspect]
     Active Substance: OXYCODONE HYDROCHLORIDE

REACTIONS (3)
  - Device failure [Recovered/Resolved]
  - Pain [Recovered/Resolved]
  - Drug withdrawal syndrome [Recovered/Resolved]

NARRATIVE: CASE EVENT DATE: 2016
